FAERS Safety Report 18614875 (Version 1)
Quarter: 2020Q4

REPORT INFORMATION
  Report Type: Report from Study
  Country: JP (occurrence: JP)
  Receive Date: 20201214
  Receipt Date: 20201214
  Transmission Date: 20210114
  Serious: Yes (Other)
  Sender: FDA-Public Use
  Company Number: JP-TAKEDA-JP201932229

PATIENT
  Age: 12 Year
  Sex: Male

DRUGS (15)
  1. FYCOMPA [Concomitant]
     Active Substance: PERAMPANEL
     Indication: PRODUCT USED FOR UNKNOWN INDICATION
     Dosage: 1 MILLIGRAM, QD
     Route: 065
     Dates: start: 20180606, end: 20180708
  2. FYCOMPA [Concomitant]
     Active Substance: PERAMPANEL
     Dosage: 2 MILLIGRAM, QD
     Route: 065
     Dates: start: 20180709, end: 20180805
  3. 503 (GUANFACINE HYDROCHLORIDE) [Suspect]
     Active Substance: GUANFACINE HYDROCHLORIDE
     Dosage: 2 MILLIGRAM, QD
     Route: 048
     Dates: start: 20180223, end: 20180306
  4. 503 (GUANFACINE HYDROCHLORIDE) [Suspect]
     Active Substance: GUANFACINE HYDROCHLORIDE
     Dosage: 3 MILLIGRAM, QD
     Route: 048
     Dates: start: 20180307
  5. LAMICTAL [Concomitant]
     Active Substance: LAMOTRIGINE
     Dosage: 15 MILLIGRAM, QD
     Route: 065
     Dates: start: 20180709, end: 20180805
  6. DEPAKENE-R [Concomitant]
     Active Substance: VALPROATE SODIUM
     Indication: PRODUCT USED FOR UNKNOWN INDICATION
     Dosage: 700 MILLIGRAM, QD
  7. LAMICTAL [Concomitant]
     Active Substance: LAMOTRIGINE
     Indication: PRODUCT USED FOR UNKNOWN INDICATION
     Dosage: 30 MILLIGRAM, QD
     Route: 065
     Dates: end: 20180708
  8. LAMICTAL [Concomitant]
     Active Substance: LAMOTRIGINE
     Dosage: 7.5 MILLIGRAM, QD
     Route: 065
     Dates: start: 20180806, end: 20180904
  9. 503 (GUANFACINE HYDROCHLORIDE) [Suspect]
     Active Substance: GUANFACINE HYDROCHLORIDE
     Indication: ATTENTION DEFICIT HYPERACTIVITY DISORDER
     Dosage: 1 MILLIGRAM, QD
     Route: 048
     Dates: start: 20171226, end: 20180222
  10. EXCEGRAN [Concomitant]
     Active Substance: ZONISAMIDE
     Indication: PRODUCT USED FOR UNKNOWN INDICATION
     Dosage: 0.725 GRAM, QD
     Route: 065
     Dates: end: 20190825
  11. DIAPP [Concomitant]
     Active Substance: DIAZEPAM
     Indication: EPILEPSY
     Dosage: 6 MILLIGRAM, QD
     Dates: start: 20180402, end: 20180402
  12. FYCOMPA [Concomitant]
     Active Substance: PERAMPANEL
     Dosage: 3 MILLIGRAM, QD
     Route: 065
     Dates: start: 20180806, end: 20180904
  13. E KEPPRA [Concomitant]
     Active Substance: LEVETIRACETAM
     Indication: PRODUCT USED FOR UNKNOWN INDICATION
     Dosage: 1750 MILLIGRAM, QD
     Route: 065
  14. DIAPP [Concomitant]
     Active Substance: DIAZEPAM
     Dosage: 6 MILLIGRAM, QD
     Dates: start: 20180420, end: 20180420
  15. FYCOMPA [Concomitant]
     Active Substance: PERAMPANEL
     Dosage: 4 MILLIGRAM, QD
     Route: 065
     Dates: start: 20180905, end: 20190625

REACTIONS (1)
  - Epilepsy [Recovered/Resolved]

NARRATIVE: CASE EVENT DATE: 20180402
